FAERS Safety Report 5689713-1 (Version None)
Quarter: 2008Q1

REPORT INFORMATION
  Report Type: 
  Country: None (occurrence: None)
  Receive Date: 20080328
  Receipt Date: 20080318
  Transmission Date: 20080703
  Serious: Yes (Other)
  Sender: FDA-Public Use
  Company Number: GXKR2008GB02774

PATIENT
  Age: 25 Year
  Sex: Female
  Weight: 80.6 kg

DRUGS (5)
  1. CODEINE PHOSPHATE (NGX)(CODEINE PHOSPHATE) UNKNOWN [Suspect]
     Indication: PAIN PROPHYLAXIS
     Dosage: 3 DF, QD
  2. METHYLPHYENIDATE HCL [Suspect]
     Dosage: 18 MG, ORAL
     Route: 048
  3. MOVICOL(MACROGOL, POTASSIUM CHLORIDE, SODIUM BICARBONATE, SODIUM CHLOR [Suspect]
     Dosage: 2 DF, QD
  4. PARACETAMOL(PARACETAMOL) UNKNOWN [Suspect]
     Indication: PAIN PROPHYLAXIS
     Dosage: 1 G, QID
  5. PROSTIN E2(DINOPROSTONE) UNKNOWN [Suspect]
     Indication: LABOUR INDUCTION
     Dosage: 5 MG, VAGINAL
     Route: 067
     Dates: start: 20071212, end: 20071223

REACTIONS (3)
  - ARTHRALGIA [None]
  - DRUG EXPOSURE DURING PREGNANCY [None]
  - PUBIC PAIN [None]
